FAERS Safety Report 5017998-3 (Version None)
Quarter: 2006Q2

REPORT INFORMATION
  Report Type: 
  Country: None (occurrence: None)
  Receive Date: 20060530
  Receipt Date: 20050408
  Transmission Date: 20061013
  Serious: Yes (Other)
  Sender: FDA-Public Use
  Company Number: 2005048231

PATIENT
  Age: 83 Year
  Sex: Female

DRUGS (2)
  1. LYRICA [Suspect]
     Indication: POST HERPETIC NEURALGIA
     Dosage: 125 MG (125 MG, 1 IN 1 D), ORAL
     Route: 048
     Dates: start: 20041221, end: 20050407
  2. PREDNISONE [Concomitant]

REACTIONS (2)
  - MUSCULAR WEAKNESS [None]
  - RESPIRATORY DISORDER [None]
